FAERS Safety Report 16201332 (Version 1)
Quarter: 2019Q2

REPORT INFORMATION
  Report Type: Other
  Country: CN (occurrence: CN)
  Receive Date: 20190416
  Receipt Date: 20190416
  Transmission Date: 20190711
  Serious: Yes (Other)
  Sender: FDA-Public Use
  Company Number: CN-JIANGSU HENGRUI MEDICINE CO., LTD.-2065880

PATIENT
  Age: 59 Year
  Sex: Male
  Weight: 80 kg

DRUGS (9)
  1. SODIUM CHLORIDE. [Concomitant]
     Active Substance: SODIUM CHLORIDE
     Route: 041
     Dates: start: 20190318, end: 20190406
  2. CISPLATIN. [Suspect]
     Active Substance: CISPLATIN
     Route: 041
     Dates: start: 20190327, end: 20190327
  3. PARONOSETRON HYDROCHLORIDE INJECTION [Concomitant]
     Route: 041
     Dates: start: 20190326, end: 20190406
  4. OMEPRAZOLE AND SODIUM BICARBONATE [Concomitant]
     Active Substance: OMEPRAZOLE\SODIUM BICARBONATE
     Route: 041
     Dates: start: 20190326, end: 20190402
  5. MANNITOL. [Concomitant]
     Active Substance: MANNITOL
     Route: 041
     Dates: start: 20190318, end: 20190325
  6. IRINOTECAN HYDROCHLORIDE INJECTION, 20 MG/ML (2 ML AND 5 ML VIALS) (AN [Suspect]
     Active Substance: IRINOTECAN HYDROCHLORIDE
     Indication: LUNG NEOPLASM MALIGNANT
     Route: 041
     Dates: start: 20190327, end: 20190327
  7. DEXAMETHASONE SODIUM PHOSPHATE. [Concomitant]
     Active Substance: DEXAMETHASONE SODIUM PHOSPHATE
     Route: 041
     Dates: start: 20190318, end: 20190406
  8. BROMHEXINE HYDROCHLORIDE FOR INJECTION [Concomitant]
     Route: 041
     Dates: start: 20190318, end: 20190406
  9. GLUCOSE (DEXTROSE MONOHYDRATE) [Concomitant]
     Active Substance: DEXTROSE MONOHYDRATE
     Route: 041
     Dates: start: 20190327, end: 20190327

REACTIONS (3)
  - Tongue ulceration [Recovering/Resolving]
  - Nausea [Recovering/Resolving]
  - Diarrhoea [Recovering/Resolving]

NARRATIVE: CASE EVENT DATE: 20190331
